FAERS Safety Report 20729679 (Version 1)
Quarter: 2022Q2

REPORT INFORMATION
  Report Type: Spontaneous
  Country: US (occurrence: US)
  Receive Date: 20220420
  Receipt Date: 20220420
  Transmission Date: 20220721
  Serious: Yes (Hospitalization, Other)
  Sender: FDA-Public Use
  Company Number: US-Accord-247228

PATIENT
  Age: 73 Year
  Sex: Female
  Weight: 85.7 kg

DRUGS (4)
  1. OXYBUTYNIN CHLORIDE [Suspect]
     Active Substance: OXYBUTYNIN CHLORIDE
     Indication: Urinary incontinence
     Route: 048
     Dates: start: 20211021, end: 20211025
  2. AVELUMAB [Suspect]
     Active Substance: AVELUMAB
     Indication: Endometrial cancer
     Route: 042
     Dates: start: 20210908
  3. AXITINIB [Suspect]
     Active Substance: AXITINIB
     Indication: Endometrial cancer
     Dosage: 6MG PER DAY
     Route: 048
     Dates: start: 20211008
  4. LISINOPRIL [Concomitant]
     Active Substance: LISINOPRIL
     Indication: Hypertension

REACTIONS (1)
  - Confusional state [Recovered/Resolved]

NARRATIVE: CASE EVENT DATE: 20210912
